FAERS Safety Report 5746353-3 (Version None)
Quarter: 2008Q2

REPORT INFORMATION
  Report Type: 
  Country: None (occurrence: None)
  Receive Date: 20080522
  Receipt Date: 20080517
  Transmission Date: 20081010
  Serious: Yes (Hospitalization, Other)
  Sender: FDA-Public Use
  Company Number: PHHY2008AR08222

PATIENT
  Age: 61 Year
  Sex: Female

DRUGS (3)
  1. CLOZAPINE [Suspect]
  2. INOTROPICS [Concomitant]
  3. NEUPOGEN [Concomitant]

REACTIONS (9)
  - AGRANULOCYTOSIS [None]
  - ASPIRATION BONE MARROW ABNORMAL [None]
  - BRONCHOPULMONARY ASPERGILLOSIS [None]
  - INFLUENZA [None]
  - LEUKOPENIA [None]
  - MECHANICAL VENTILATION [None]
  - NEUTROPHIL COUNT DECREASED [None]
  - PNEUMONIA [None]
  - WHITE BLOOD CELL COUNT DECREASED [None]
